FAERS Safety Report 7024525-8 (Version None)
Quarter: 2010Q4

REPORT INFORMATION
  Report Type: 
  Country: None (occurrence: None)
  Receive Date: 20101001
  Receipt Date: 20100920
  Transmission Date: 20110411
  Serious: Yes (Disabling)
  Sender: FDA-Public Use
  Company Number: B0675209A

PATIENT
  Sex: Female

DRUGS (2)
  1. TYVERB [Suspect]
     Dosage: 5UNIT PER DAY
     Route: 048
     Dates: start: 20100628
  2. XELODA [Suspect]
     Dosage: 8UNIT PER DAY
     Route: 048
     Dates: start: 20100628

REACTIONS (5)
  - GAIT DISTURBANCE [None]
  - MOBILITY DECREASED [None]
  - PALMAR-PLANTAR ERYTHRODYSAESTHESIA SYNDROME [None]
  - SKIN BURNING SENSATION [None]
  - SKIN DISORDER [None]
